FAERS Safety Report 8895880 (Version 1)
Quarter: 2012Q4

REPORT INFORMATION
  Report Type: 
  Country: US (occurrence: US)
  Receive Date: 20121108
  Receipt Date: 20121108
  Transmission Date: 20130627
  Serious: No
  Sender: FDA-Public Use
  Company Number: US-009507513-1211USA002860

PATIENT
  Sex: Male

DRUGS (2)
  1. SIMVASTATIN [Suspect]
     Dosage: Every 3 weeks
  2. INTRONA [Concomitant]
     Indication: NEUROENDOCRINE TUMOUR
     Dosage: 5 million IU, tiw
     Route: 058
     Dates: start: 201012

REACTIONS (1)
  - Blood pressure increased [Unknown]
